FAERS Safety Report 7716001-1 (Version None)
Quarter: 2011Q3

REPORT INFORMATION
  Report Type: 
  Country: None (occurrence: None)
  Receive Date: 20110829
  Receipt Date: 20110823
  Transmission Date: 20111222
  Serious: Yes (Hospitalization)
  Sender: FDA-Public Use
  Company Number: ES-PFIZER INC-2011194750

PATIENT
  Age: 86 Year
  Sex: Male

DRUGS (6)
  1. TYGACIL [Suspect]
     Indication: SEPSIS
     Dosage: 50 MG, 2X/DAY
     Route: 042
     Dates: start: 20110217, end: 20110222
  2. ENOXAPARIN SODIUM [Suspect]
     Indication: PROPHYLAXIS
     Dosage: 40 MG, 1X/DAY
     Route: 058
     Dates: start: 20110220
  3. METHYLPREDNISOLONE [Suspect]
     Indication: BRONCHOSPASM
     Dosage: 40 MG, 2X/DAY
     Route: 042
     Dates: start: 20110217
  4. AMIKACIN [Suspect]
     Indication: SEPSIS
     Dosage: 500 MG, 1X/DAY
     Route: 042
     Dates: start: 20110217, end: 20110222
  5. ALBUTEROL [Suspect]
     Indication: BRONCHOSPASM
     Dosage: UNK
     Route: 055
     Dates: start: 20110217
  6. PANTOPRAZOLE [Suspect]
     Indication: PROPHYLAXIS
     Dosage: 40 MG, 1X/DAY
     Route: 042
     Dates: start: 20110217, end: 20110222

REACTIONS (1)
  - HEPATITIS CHOLESTATIC [None]
